FAERS Safety Report 8830843 (Version 3)
Quarter: 2013Q1

REPORT INFORMATION
  Report Type: Spontaneous
  Country: US (occurrence: US)
  Receive Date: 20121008
  Receipt Date: 20130115
  Transmission Date: 20140127
  Serious: Yes (Other)
  Sender: FDA-Public Use
  Company Number: US-PFIZER INC-2012247774

PATIENT
  Age: 67 Year
  Sex: Female

DRUGS (5)
  1. ADVIL [Suspect]
     Dosage: UNK
  2. CELEBREX [Suspect]
     Indication: OSTEOARTHRITIS
     Dosage: UNK
  3. ASPIRIN [Suspect]
     Dosage: UNK
  4. ULTRAM [Suspect]
     Dosage: UNK
  5. EFEXOR XR [Concomitant]
     Indication: ANXIETY
     Dosage: UNK

REACTIONS (4)
  - Ulcer haemorrhage [Unknown]
  - Diabetes mellitus [Unknown]
  - Osteopenia [Unknown]
  - Osteoporosis [Unknown]
